FAERS Safety Report 10239630 (Version 1)
Quarter: 2014Q2

REPORT INFORMATION
  Report Type: Spontaneous
  Country: FR (occurrence: None)
  Receive Date: 20140612
  Receipt Date: 20140612
  Transmission Date: 20141212
  Serious: Yes (Hospitalization)
  Sender: FDA-Public Use
  Company Number: 2014050802

PATIENT
  Age: 30 Year
  Sex: Female

DRUGS (1)
  1. CYSTEAMINE BITARTRATE [Suspect]
     Indication: CYSTINOSIS
     Dates: start: 20130917

REACTIONS (5)
  - Arteriovenous fistula occlusion [None]
  - Bacteraemia [None]
  - Malaise [None]
  - Hypertension [None]
  - Cerebrovascular accident [None]
